FAERS Safety Report 7802532-2 (Version None)
Quarter: 2011Q4

REPORT INFORMATION
  Report Type: 
  Country: None (occurrence: None)
  Receive Date: 20111007
  Receipt Date: 20111004
  Transmission Date: 20120403
  Serious: Yes (Life-Threatening)
  Sender: FDA-Public Use
  Company Number: IT-BAYER-2011-084882

PATIENT
  Age: 71 Year
  Sex: Male

DRUGS (2)
  1. NEXAVAR [Suspect]
     Indication: HEPATIC NEOPLASM MALIGNANT
     Dosage: DAILY DOSE 400 MG
     Route: 048
     Dates: start: 20110727, end: 20110809
  2. NEXAVAR [Suspect]
     Dosage: DAILY DOSE 800 MG
     Route: 048
     Dates: start: 20110511, end: 20110726

REACTIONS (2)
  - ABNORMAL LOSS OF WEIGHT [None]
  - DECREASED APPETITE [None]
